FAERS Safety Report 23282622 (Version 3)
Quarter: 2024Q1

REPORT INFORMATION
  Report Type: Spontaneous
  Country: PT (occurrence: PT)
  Receive Date: 20231211
  Receipt Date: 20240301
  Transmission Date: 20240409
  Serious: Yes (Hospitalization, Other)
  Sender: FDA-Public Use
  Company Number: PT-009507513-2312PRT000592

PATIENT
  Age: 53 Year
  Sex: Male

DRUGS (4)
  1. RALTEGRAVIR POTASSIUM [Suspect]
     Active Substance: RALTEGRAVIR POTASSIUM
     Indication: HIV infection
     Dosage: 400 MILLIGRAM, Q12H
     Route: 048
     Dates: start: 2014, end: 2018
  2. DARUNAVIR\RITONAVIR [Suspect]
     Active Substance: DARUNAVIR\RITONAVIR
     Indication: HIV infection
     Dosage: UNK
     Dates: start: 2008
  3. EMTRICITABINE\TENOFOVIR DISOPROXIL FUMARATE [Suspect]
     Active Substance: EMTRICITABINE\TENOFOVIR DISOPROXIL FUMARATE
     Indication: HIV infection
     Dosage: UNK
     Dates: start: 200602
  4. COCAINE [Concomitant]
     Active Substance: COCAINE
     Dosage: UNK
     Dates: start: 200602

REACTIONS (8)
  - Myelitis [Unknown]
  - Nephropathy toxic [Recovering/Resolving]
  - Paraparesis [Unknown]
  - Vitamin D deficiency [Unknown]
  - Drug resistance [Unknown]
  - Blood cholesterol increased [Recovering/Resolving]
  - Low density lipoprotein increased [Recovering/Resolving]
  - Treatment noncompliance [Unknown]

NARRATIVE: CASE EVENT DATE: 20150101
